FAERS Safety Report 16325254 (Version 1)
Quarter: 2019Q2

REPORT INFORMATION
  Report Type: Spontaneous
  Country: US (occurrence: US)
  Receive Date: 20190516
  Receipt Date: 20190516
  Transmission Date: 20190711
  Serious: No
  Sender: FDA-Public Use
  Company Number: None

PATIENT
  Age: 30 Year
  Sex: Female

DRUGS (1)
  1. INVEGA TRINZA [Suspect]
     Active Substance: PALIPERIDONE PALMITATE
     Dosage: ?          OTHER FREQUENCY:EVERY 3 MONTHS;?
     Route: 030

REACTIONS (1)
  - Constipation [None]

NARRATIVE: CASE EVENT DATE: 20190516
